FAERS Safety Report 9548940 (Version 1)
Quarter: 2013Q3

REPORT INFORMATION
  Report Type: Spontaneous
  Country: SE (occurrence: SE)
  Receive Date: 20130924
  Receipt Date: 20130924
  Transmission Date: 20140515
  Serious: Yes (Hospitalization, Disabling)
  Sender: FDA-Public Use
  Company Number: SE-ROCHE-1279773

PATIENT
  Age: 42 Year
  Sex: Female

DRUGS (7)
  1. CELLCEPT [Suspect]
     Indication: PRODUCT USED FOR UNKNOWN INDICATION
     Route: 048
     Dates: start: 201106, end: 20111003
  2. PREDNISOLON [Concomitant]
  3. KEPPRA [Concomitant]
  4. OXYCONTIN [Concomitant]
  5. OXYNORM [Concomitant]
  6. ATARAX (SWEDEN) [Concomitant]
  7. PANODIL [Concomitant]

REACTIONS (5)
  - Coordination abnormal [Recovering/Resolving]
  - Paralysis [Recovering/Resolving]
  - Speech disorder [Recovering/Resolving]
  - Bradyphrenia [Recovering/Resolving]
  - Hemiparesis [Recovered/Resolved with Sequelae]
